FAERS Safety Report 4402716-X (Version None)
Quarter: 2004Q3

REPORT INFORMATION
  Report Type: 
  Country: None (occurrence: None)
  Receive Date: 20040720
  Receipt Date: 20040720
  Transmission Date: 20050211
  Serious: Yes (Other)
  Sender: FDA-Public Use
  Company Number: None

PATIENT
  Age: 20 Year
  Sex: Male
  Weight: 80.7403 kg

DRUGS (1)
  1. ETOPOSIDE [Suspect]
     Indication: ACUTE LYMPHOCYTIC LEUKAEMIA
     Dosage: 200 MG Q DAY IV
     Route: 042
     Dates: start: 20040430, end: 20040502

REACTIONS (2)
  - BRADYCARDIA [None]
  - HYPOTHERMIA [None]
